FAERS Safety Report 24967230 (Version 1)
Quarter: 2025Q1

REPORT INFORMATION
  Report Type: Spontaneous
  Country: US (occurrence: US)
  Receive Date: 20250213
  Receipt Date: 20250213
  Transmission Date: 20250409
  Serious: No
  Sender: JOHNSON AND JOHNSON
  Company Number: US-JNJFOC-20250120072

PATIENT
  Age: 82 Year
  Sex: Male

DRUGS (2)
  1. STELARA [Suspect]
     Active Substance: USTEKINUMAB
     Indication: Colitis
     Dosage: MOST RECENT THERAPY DATE:  02-JAN-2025
     Route: 058
  2. STELARA [Suspect]
     Active Substance: USTEKINUMAB

REACTIONS (4)
  - Fall [Unknown]
  - Memory impairment [Unknown]
  - Impaired driving ability [Unknown]
  - Off label use [Unknown]

NARRATIVE: CASE EVENT DATE: 20240401
